FAERS Safety Report 25761411 (Version 1)
Quarter: 2025Q3

REPORT INFORMATION
  Report Type: Spontaneous
  Country: US (occurrence: None)
  Receive Date: 20250904
  Receipt Date: 20250904
  Transmission Date: 20251021
  Serious: Yes (Other)
  Sender: FDA-CTU
  Company Number: None

PATIENT
  Sex: Female

DRUGS (5)
  1. COSENTYX [Suspect]
     Active Substance: SECUKINUMAB
     Indication: Psoriasis
     Route: 058
     Dates: start: 20250613
  2. GABAPENTIN [Concomitant]
     Active Substance: GABAPENTIN
  3. LOSARTAN [Concomitant]
     Active Substance: LOSARTAN
  4. METHOTREXATE [Concomitant]
     Active Substance: METHOTREXATE
  5. VITAMIN B [Concomitant]
     Active Substance: VITAMIN B

REACTIONS (3)
  - Loss of personal independence in daily activities [None]
  - Surgery [None]
  - Intentional dose omission [None]
